FAERS Safety Report 10958599 (Version 1)
Quarter: 2015Q1

REPORT INFORMATION
  Report Type: Report from Study
  Country: US (occurrence: US)
  Receive Date: 20150326
  Receipt Date: 20150326
  Transmission Date: 20150721
  Serious: Yes (Other)
  Sender: FDA-Public Use
  Company Number: US-GILEAD-2015-0144656

PATIENT
  Age: 65 Year
  Sex: Female

DRUGS (1)
  1. AMBRISENTAN [Suspect]
     Active Substance: AMBRISENTAN
     Indication: PULMONARY ARTERIAL HYPERTENSION
     Dosage: 5 MG, UNK
     Route: 065
     Dates: start: 20130403

REACTIONS (6)
  - Unevaluable event [Unknown]
  - Renal failure [Unknown]
  - Fistula [Unknown]
  - Blindness [Unknown]
  - Dialysis [Unknown]
  - Upper limb fracture [Not Recovered/Not Resolved]
